FAERS Safety Report 8586033-2 (Version None)
Quarter: 2012Q3

REPORT INFORMATION
  Report Type: 
  Country: None (occurrence: None)
  Receive Date: 20120810
  Receipt Date: 20120730
  Transmission Date: 20120928
  Serious: Yes (Death, Hospitalization, Other)
  Sender: FDA-Public Use
  Company Number: DE-ROCHE-1064295

PATIENT
  Sex: Female
  Weight: 61 kg

DRUGS (3)
  1. HERCEPTIN [Concomitant]
     Indication: BREAST CANCER METASTATIC
     Dates: start: 20120301
  2. CARBOPLATIN [Concomitant]
     Indication: BREAST CANCER METASTATIC
     Route: 042
     Dates: start: 20120331
  3. XELODA [Suspect]
     Indication: BREAST CANCER METASTATIC
     Route: 048
     Dates: start: 20120331

REACTIONS (8)
  - AGRANULOCYTOSIS [None]
  - PANCYTOPENIA [None]
  - DIARRHOEA [None]
  - MUCOSAL INFLAMMATION [None]
  - FEBRILE INFECTION [None]
  - SEPSIS [None]
  - FEBRILE NEUTROPENIA [None]
  - PALMAR-PLANTAR ERYTHRODYSAESTHESIA SYNDROME [None]
